FAERS Safety Report 8210960-9 (Version None)
Quarter: 2012Q1

REPORT INFORMATION
  Report Type: 
  Country: None (occurrence: None)
  Receive Date: 20120315
  Receipt Date: 20120307
  Transmission Date: 20120608
  Serious: Yes (Life-Threatening, Hospitalization, Other)
  Sender: FDA-Public Use
  Company Number: CH-BAYER-200937229GPV

PATIENT
  Age: 87 Year
  Sex: Female

DRUGS (7)
  1. SIMCORA [Concomitant]
     Indication: HYPERLIPIDAEMIA
     Route: 048
  2. FLAGYL [Suspect]
     Indication: SMALL INTESTINAL PERFORATION
     Route: 048
     Dates: start: 20090115
  3. CIPROFLOXACIN HCL [Suspect]
     Indication: SMALL INTESTINAL PERFORATION
     Dosage: 500 MG, BID
     Route: 048
     Dates: start: 20090115, end: 20090130
  4. FLAGYL [Suspect]
     Indication: DUODENAL PERFORATION
  5. CIPROFLOXACIN HCL [Suspect]
     Indication: DUODENAL PERFORATION
  6. LANSOPRAZOLE [Concomitant]
     Route: 048
  7. CANDESARTAN CILEXETIL [Concomitant]
     Indication: HYPERTENSION
     Route: 048

REACTIONS (4)
  - ELECTROCARDIOGRAM QT INTERVAL ABNORMAL [None]
  - ELECTROCARDIOGRAM QT PROLONGED [None]
  - TORSADE DE POINTES [None]
  - CARDIOVASCULAR DISORDER [None]
